FAERS Safety Report 6309267-6 (Version None)
Quarter: 2009Q3

REPORT INFORMATION
  Report Type: 
  Country: None (occurrence: None)
  Receive Date: 20090814
  Receipt Date: 20090813
  Transmission Date: 20100115
  Serious: Yes (Hospitalization)
  Sender: FDA-Public Use
  Company Number: ES-PFIZER INC-2009235336

PATIENT
  Age: 63 Year

DRUGS (2)
  1. ALDACTONE [Suspect]
     Dosage: 100 MG, UNK
     Route: 048
     Dates: start: 20080101, end: 20081207
  2. SEGURIL [Interacting]
     Dosage: 40 MG, UNK
     Route: 048
     Dates: start: 20080101, end: 20081207

REACTIONS (2)
  - DRUG INTERACTION [None]
  - HEPATIC ENCEPHALOPATHY [None]
